FAERS Safety Report 6093070-9 (Version None)
Quarter: 2009Q1

REPORT INFORMATION
  Report Type: 
  Country: None (occurrence: None)
  Receive Date: 20090225
  Receipt Date: 20090220
  Transmission Date: 20090719
  Serious: Yes (Death)
  Sender: FDA-Public Use
  Company Number: FR-GILEAD-2009-0020423

PATIENT
  Age: 45 Year
  Sex: Male

DRUGS (9)
  1. VIREAD [Suspect]
     Indication: HIV INFECTION
     Route: 048
     Dates: start: 20051028, end: 20081201
  2. CELSENTRI 300 [Concomitant]
     Route: 048
     Dates: start: 20051028, end: 20081201
  3. ISENTRESS [Concomitant]
     Route: 048
     Dates: start: 20071023, end: 20081201
  4. RETROVIR [Concomitant]
     Route: 048
     Dates: start: 20051028, end: 20081201
  5. AUGMENTIN [Concomitant]
     Dates: start: 20081201
  6. CLAFORAN [Concomitant]
     Dates: start: 20081201
  7. ROVAMYCINE [Concomitant]
     Dates: start: 20081201
  8. TAVANIC [Concomitant]
     Dates: start: 20081201
  9. TICARCILLINE [Concomitant]
     Dates: start: 20081201

REACTIONS (5)
  - CARDIAC ARREST [None]
  - LEGIONELLA INFECTION [None]
  - RESPIRATORY DISTRESS [None]
  - SEPTIC SHOCK [None]
  - SYSTEMIC MYCOSIS [None]
